FAERS Safety Report 10378636 (Version 1)
Quarter: 2014Q3

REPORT INFORMATION
  Report Type: Spontaneous
  Country: US (occurrence: None)
  Receive Date: 20140804
  Receipt Date: 20140804
  Transmission Date: 20150326
  Serious: Yes (Death, Life-Threatening, Hospitalization, Disabling)
  Sender: FDA-Public Use
  Company Number: 1224850-2013-0001

PATIENT
  Age: 48 Year
  Sex: Male
  Weight: 113.6 kg

DRUGS (1)
  1. PHOSLO [Suspect]
     Active Substance: CALCIUM ACETATE

REACTIONS (2)
  - General physical health deterioration [None]
  - Myocardial infarction [None]

NARRATIVE: CASE EVENT DATE: 20130520
